FAERS Safety Report 9388776 (Version 4)
Quarter: 2013Q3

REPORT INFORMATION
  Report Type: Spontaneous
  Country: US (occurrence: US)
  Receive Date: 20130708
  Receipt Date: 20130905
  Transmission Date: 20140515
  Serious: No
  Sender: FDA-Public Use
  Company Number: US-PFIZER INC-2013198428

PATIENT
  Age: 70 Year
  Sex: Female
  Weight: 112 kg

DRUGS (12)
  1. EFFEXOR [Suspect]
     Indication: DEPRESSION
     Dosage: 225 MG (THREE CAPSULES), DAILY AT BEDTIME
     Route: 048
     Dates: start: 201209, end: 2013
  2. EFFEXOR [Suspect]
     Indication: ANXIETY
  3. SYMBICORT [Concomitant]
     Indication: ASTHMA
     Dosage: 160-4.5 MCG/ACT, 2 PUFFS, 2X/DAY
     Dates: start: 20120727
  4. PROAIR HFA [Concomitant]
     Indication: ASTHMA
     Dosage: 108 MCG/ACT, 2 PUFFS, FOUR TIMES DAILY, AS NEEDED
     Dates: start: 20120511
  5. PROAIR HFA [Concomitant]
     Indication: WHEEZING
  6. FISH OIL [Concomitant]
     Dosage: UNK, 1X/DAY (QD)
     Route: 048
  7. FLUTICASONE PROPIONATE [Concomitant]
     Dosage: 50 MCG/ACT, 1 TO 2 SPRAYS AT BEDTIME
     Route: 045
  8. PRAVACHOL [Concomitant]
     Dosage: 80 MG, AT BEDTIME
     Route: 048
     Dates: start: 20120910
  9. TOPROL XL [Concomitant]
     Indication: HYPERTENSION
     Dosage: 100 MG, 1X/DAY (QD)
     Route: 048
     Dates: start: 20130301
  10. ASPIRIN [Concomitant]
     Dosage: 81 MG, 1X/DAY (QD)
     Route: 048
  11. ANTIVERT [Concomitant]
     Indication: VERTIGO
     Dosage: 25 MG, 2X/DAY, AS NEEDED
     Route: 048
     Dates: start: 20120511
  12. TYLENOL W/CODEINE NO. 3 [Concomitant]
     Indication: PAIN
     Dosage: 300-30 MG,1-2 TABLET EVERY SIX HOURS AS NEEDED
     Route: 048
     Dates: start: 20121210

REACTIONS (10)
  - Bradyphrenia [Recovering/Resolving]
  - Crying [Recovering/Resolving]
  - Anxiety [Recovering/Resolving]
  - Nervousness [Recovering/Resolving]
  - Dizziness [Recovered/Resolved]
  - Thinking abnormal [Recovering/Resolving]
  - Nausea [Recovering/Resolving]
  - Mental disorder [Recovering/Resolving]
  - Headache [Unknown]
  - Drug withdrawal syndrome [Recovering/Resolving]
